FAERS Safety Report 9683428 (Version 2)
Quarter: 2015Q1

REPORT INFORMATION
  Report Type: Spontaneous
  Country: DK (occurrence: DK)
  Receive Date: 20131112
  Receipt Date: 20150317
  Transmission Date: 20150721
  Serious: Yes (Hospitalization, Other)
  Sender: FDA-Public Use
  Company Number: DK-NOVOPROD-391850

PATIENT
  Age: 76 Year
  Sex: Female
  Weight: 65 kg

DRUGS (8)
  1. VAGIFEM [Suspect]
     Active Substance: ESTRADIOL
     Indication: MUCOSAL DRYNESS
     Dosage: 25 ?G, BIW
     Route: 067
     Dates: start: 20130511, end: 20130722
  2. AMLODIPIN ^ACTAVIS^ [Concomitant]
  3. AMLODIPIN ACTAVIS                  /00972402/ [Concomitant]
  4. LANSOPRAZOLE. [Concomitant]
     Active Substance: LANSOPRAZOLE
  5. SIMVASTATIN. [Concomitant]
     Active Substance: SIMVASTATIN
  6. HJERTEMAGNYL [Concomitant]
     Active Substance: ASPIRIN\MAGNESIUM OXIDE
  7. PERSANTIN RETARD [Concomitant]
     Active Substance: DIPYRIDAMOLE
  8. CENTYL MED KALIUMKLORID [Concomitant]
     Active Substance: BENDROFLUMETHIAZIDE\POTASSIUM CHLORIDE

REACTIONS (3)
  - Fibroadenoma of breast [Recovering/Resolving]
  - Dizziness [Not Recovered/Not Resolved]
  - Amaurosis fugax [Recovered/Resolved with Sequelae]

NARRATIVE: CASE EVENT DATE: 20130722
